FAERS Safety Report 8501434-6 (Version None)
Quarter: 2012Q3

REPORT INFORMATION
  Report Type: 
  Country: None (occurrence: None)
  Receive Date: 20120710
  Receipt Date: 20120619
  Transmission Date: 20120928
  Serious: Yes (Death)
  Sender: FDA-Public Use
  Company Number: US-ROCHE-1082969

PATIENT
  Age: 75 Year
  Sex: Female

DRUGS (31)
  1. SPIRONOLACTONE [Concomitant]
     Route: 048
  2. VASOPRESSIN [Concomitant]
     Dosage: 57.6 U (0.04 U, 1 IN 1 MIN)
     Route: 042
  3. LORAZEPAM [Concomitant]
     Indication: ANXIETY
     Dosage: AS REQUIRED
     Route: 048
  4. DOBUTAMINE HCL [Concomitant]
     Route: 042
  5. INSULIN [Concomitant]
  6. ACTIVASE [Suspect]
     Indication: PULMONARY EMBOLISM
     Dosage: OVER 2 HOURS
     Route: 042
  7. MULTI-VITAMINS [Concomitant]
     Route: 048
  8. CITRACAL [Concomitant]
     Route: 048
  9. XOPENEX [Concomitant]
     Dosage: NEBULIZER ROUTE INHALATION
  10. AMIODARONE HCL [Concomitant]
     Route: 042
  11. NOREPINEPHRINE [Concomitant]
     Route: 042
  12. ENOXAPARIN [Suspect]
     Indication: PULMONARY EMBOLISM
     Dosage: ENOXAPARIN 70 MG
     Route: 058
  13. ENOXAPARIN [Suspect]
     Route: 058
  14. HEPARIN [Suspect]
     Indication: PULMONARY EMBOLISM
     Route: 058
  15. DOCUSATE [Concomitant]
     Dosage: 100 MG,AS NEEDED
     Route: 048
  16. PANTOPRAZOLE [Concomitant]
     Route: 042
  17. ACETYLCYSTEINE [Concomitant]
     Dosage: NEBULIZER AND ROUTE INHALATION
  18. ZYVOX [Concomitant]
     Route: 042
  19. CIPROFLOXACIN [Concomitant]
     Route: 042
  20. BIOTIN [Concomitant]
     Route: 048
  21. GLUCOSAMINE/CHONDROITIN [Concomitant]
     Dosage: STRENGTH: 500/400 MG, AS NEEDED
     Route: 048
  22. METOPROLOL SUCCINATE [Concomitant]
     Route: 048
  23. SODIUM CHLORIDE [Concomitant]
     Route: 042
  24. SALINE [Concomitant]
     Dosage: 1 SPRAY INTO NOSTRILS
     Route: 045
  25. CEFEPIME [Concomitant]
     Route: 042
  26. HYDROCORTISONE [Concomitant]
     Route: 042
  27. BIVALIRUDIN [Suspect]
     Indication: PULMONARY EMBOLISM
  28. VITAMIN B1 TAB [Concomitant]
     Route: 048
  29. DOPAMINE HCL [Concomitant]
     Route: 042
  30. FENTANYL [Concomitant]
     Route: 042
  31. D5 .5NS [Concomitant]
     Route: 042

REACTIONS (11)
  - THROMBOCYTOPENIA [None]
  - ENCEPHALOPATHY [None]
  - ANAEMIA [None]
  - CARDIOGENIC SHOCK [None]
  - TOXIC EPIDERMAL NECROLYSIS [None]
  - COAGULOPATHY [None]
  - SEPTIC SHOCK [None]
  - RENAL FAILURE [None]
  - MULTI-ORGAN FAILURE [None]
  - HEPATIC FAILURE [None]
  - RESPIRATORY FAILURE [None]
